FAERS Safety Report 19905063 (Version 1)
Quarter: 2021Q3

REPORT INFORMATION
  Report Type: Report from Study
  Country: FR (occurrence: FR)
  Receive Date: 20210930
  Receipt Date: 20210930
  Transmission Date: 20211014
  Serious: Yes (Hospitalization)
  Sender: FDA-Public Use
  Company Number: FR-SERVIER-S20005371

PATIENT

DRUGS (8)
  1. PEGASPARGASE [Suspect]
     Active Substance: PEGASPARGASE
     Indication: ACUTE LYMPHOCYTIC LEUKAEMIA
     Dosage: 1350 IU, ON D15, D43
     Route: 042
     Dates: start: 20200511
  2. TN UNSEPCIFIED [Concomitant]
     Indication: ACUTE LYMPHOCYTIC LEUKAEMIA
     Dosage: 15 MG, ON D3, D31
     Route: 037
     Dates: start: 20200429
  3. TN UNSEPCIFIED [Concomitant]
     Indication: ACUTE LYMPHOCYTIC LEUKAEMIA
     Dosage: 1080 MG, ON D1, D29
     Route: 042
     Dates: start: 20200424
  4. TN UNSEPCIFIED [Concomitant]
     Indication: ACUTE LYMPHOCYTIC LEUKAEMIA
     Dosage: 1.6 MG, ON D15, D22, D43, D50
     Route: 042
     Dates: start: 20200511
  5. TN UNSPECIFIED [Concomitant]
     Indication: ACUTE LYMPHOCYTIC LEUKAEMIA
     Dosage: 80.2 MG, D4?D6, D10?D13, D31?D34, D38?D40
     Route: 042
     Dates: start: 20200429, end: 20200607
  6. TN UNSPECIFIED [Concomitant]
     Dosage: 30 MG, D3 AND D31
     Route: 037
     Dates: start: 20200429, end: 20200528
  7. TN UNSEPCIFIED [Concomitant]
     Indication: ACUTE LYMPHOCYTIC LEUKAEMIA
     Dosage: 50 MG FROM D1 TO D14 AND D29 TO D42
     Route: 048
     Dates: start: 20200424
  8. TN UNSEPCIFIED [Concomitant]
     Indication: ACUTE LYMPHOCYTIC LEUKAEMIA
     Dosage: 15 MG, D3, D31
     Route: 037
     Dates: start: 20200429

REACTIONS (2)
  - Urinary tract infection [Recovered/Resolved]
  - Chills [Recovered/Resolved]

NARRATIVE: CASE EVENT DATE: 20200525
